FAERS Safety Report 5701611-3 (Version None)
Quarter: 2008Q2

REPORT INFORMATION
  Report Type: 
  Country: None (occurrence: None)
  Receive Date: 20080410
  Receipt Date: 20080410
  Transmission Date: 20081010
  Serious: Yes (Disabling)
  Sender: FDA-Public Use
  Company Number: None

PATIENT
  Sex: Male
  Weight: 65.7716 kg

DRUGS (1)
  1. PLAVIX [Suspect]
     Indication: TRANSFUSION
     Dosage: ONE TAB DAILY ORAL
     Route: 048
     Dates: start: 20080218

REACTIONS (3)
  - RASH [None]
  - SKIN DISCOLOURATION [None]
  - SKIN WRINKLING [None]
